FAERS Safety Report 4398042-8 (Version None)
Quarter: 2004Q3

REPORT INFORMATION
  Report Type: 
  Country: None (occurrence: None)
  Receive Date: 20040715
  Receipt Date: 20040621
  Transmission Date: 20050211
  Serious: Yes (Other)
  Sender: FDA-Public Use
  Company Number: PHHO2004CA09051

PATIENT
  Age: 44 Year
  Sex: Female

DRUGS (4)
  1. CLOZARIL [Suspect]
     Dosage: 187.5 MG DECREASED TO 137 MG
     Route: 048
     Dates: start: 20031124, end: 20040605
  2. FLUOXETINE [Concomitant]
  3. DEXTRO AMPHETAMINE SULFATE TAB [Concomitant]
  4. ATIVAN [Concomitant]

REACTIONS (5)
  - BLOOD CHOLESTEROL INCREASED [None]
  - BLOOD TRIGLYCERIDES INCREASED [None]
  - HIGH DENSITY LIPOPROTEIN DECREASED [None]
  - TACHYCARDIA [None]
  - WEIGHT INCREASED [None]
